FAERS Safety Report 23326534 (Version 1)
Quarter: 2023Q4

REPORT INFORMATION
  Report Type: Report from Study
  Country: KR (occurrence: KR)
  Receive Date: 20231221
  Receipt Date: 20231221
  Transmission Date: 20240110
  Serious: Yes (Hospitalization)
  Sender: FDA-Public Use
  Company Number: KR-BR-2023-0192

PATIENT
  Age: 69 Year
  Sex: Female
  Weight: 42.8 kg

DRUGS (6)
  1. LURBINECTEDIN [Suspect]
     Active Substance: LURBINECTEDIN
     Indication: Small cell lung cancer
     Dosage: 4 MILLIGRAM/SQ. METER
     Route: 042
     Dates: start: 20230414, end: 20230414
  2. LURBINECTEDIN [Suspect]
     Active Substance: LURBINECTEDIN
     Dosage: 2.8 MILLIGRAM/SQ. METER
     Route: 042
     Dates: start: 20230509, end: 20230509
  3. MEGACE [Concomitant]
     Active Substance: MEGESTROL ACETATE
     Indication: Asthenia
     Dosage: 10 MILLIGRAM, QD
     Route: 048
     Dates: start: 20230320
  4. HARMONILAN [Concomitant]
     Indication: Asthenia
     Dosage: 200 MILLILITER, BID
     Route: 048
     Dates: start: 20230320
  5. MOSAPRIDE CITRATE [Concomitant]
     Active Substance: MOSAPRIDE CITRATE
     Indication: Dyspepsia
     Dosage: 10 MILLIGRAM, BID
     Route: 048
     Dates: start: 20230320
  6. LANSOPRAZOLE [Concomitant]
     Active Substance: LANSOPRAZOLE
     Indication: Dyspepsia
     Dosage: 15 MILLIGRAM, QD
     Route: 048
     Dates: start: 20230410

REACTIONS (1)
  - Neutrophil count decreased [Recovered/Resolved]

NARRATIVE: CASE EVENT DATE: 20230421
